FAERS Safety Report 7276141-0 (Version None)
Quarter: 2011Q1

REPORT INFORMATION
  Report Type: 
  Country: None (occurrence: None)
  Receive Date: 20110204
  Receipt Date: 20110125
  Transmission Date: 20110831
  Serious: Yes (Other)
  Sender: FDA-Public Use
  Company Number: PHHY2011US02120

PATIENT
  Sex: Female
  Weight: 52.154 kg

DRUGS (4)
  1. VIVELLE-DOT [Suspect]
     Indication: HORMONE REPLACEMENT THERAPY
     Dosage: 0.1MG,  TWICE A WEEK
     Route: 062
  2. VIVELLE-DOT [Suspect]
     Dosage: HALF PATCH PER THREE AND HALF DAYS
     Route: 062
  3. VIVELLE-DOT [Suspect]
     Dosage: 0.05 MG, TWICE A WEEK
     Route: 062
  4. ESTRADIOL [Suspect]
     Route: 062

REACTIONS (3)
  - WRONG TECHNIQUE IN DRUG USAGE PROCESS [None]
  - ATTENTION DEFICIT/HYPERACTIVITY DISORDER [None]
  - DRUG INEFFECTIVE [None]
